FAERS Safety Report 17445636 (Version 1)
Quarter: 2020Q1

REPORT INFORMATION
  Report Type: Spontaneous
  Country: US (occurrence: US)
  Receive Date: 20200221
  Receipt Date: 20200221
  Transmission Date: 20200409
  Serious: Yes (Other)
  Sender: FDA-Public Use
  Company Number: NVSC2020US045717

PATIENT
  Age: 5 Year
  Sex: Male

DRUGS (3)
  1. METHOTREXATE. [Suspect]
     Active Substance: METHOTREXATE
     Indication: ACUTE LYMPHOCYTIC LEUKAEMIA
     Dosage: UNK
     Route: 065
  2. CYTARABINE. [Suspect]
     Active Substance: CYTARABINE
     Indication: VENOOCCLUSIVE DISEASE
     Dosage: UNK
     Route: 065
  3. THIOGUANINE [Suspect]
     Active Substance: THIOGUANINE
     Indication: VENOOCCLUSIVE DISEASE
     Dosage: UNK
     Route: 065

REACTIONS (14)
  - Hepatomegaly [Unknown]
  - Vision blurred [Unknown]
  - Oedema [Unknown]
  - Mental status changes [Unknown]
  - Hyperbilirubinaemia [Unknown]
  - Ascites [Unknown]
  - Venoocclusive disease [Unknown]
  - Weight increased [Unknown]
  - Haematochezia [Unknown]
  - Retinal haemorrhage [Unknown]
  - Contusion [Unknown]
  - Lethargy [Unknown]
  - Thrombocytopenia [Unknown]
  - Respiratory distress [Unknown]
